FAERS Safety Report 5897152-3 (Version None)
Quarter: 2008Q3

REPORT INFORMATION
  Report Type: 
  Country: None (occurrence: None)
  Receive Date: 20080924
  Receipt Date: 20080709
  Transmission Date: 20090109
  Serious: Yes (Other)
  Sender: FDA-Public Use
  Company Number: US-ASTRAZENECA-2008UW07992

PATIENT
  Age: 37 Year
  Sex: Female
  Weight: 108.9 kg

DRUGS (5)
  1. SEROQUEL [Suspect]
     Indication: DEPRESSION
     Dosage: INCLUDING, BUT NOT LIMITED TO 25 MG
     Route: 048
     Dates: start: 20040101, end: 20050401
  2. SEROQUEL [Suspect]
     Indication: BIPOLAR DISORDER
     Dosage: INCLUDING, BUT NOT LIMITED TO 25 MG
     Route: 048
     Dates: start: 20040101, end: 20050401
  3. GEODON [Concomitant]
     Dates: start: 20060101, end: 20070101
  4. RISPERDAL [Concomitant]
     Dates: start: 20050101
  5. ZOLOFT [Concomitant]
     Dates: start: 20050101

REACTIONS (4)
  - BLOOD CHOLESTEROL INCREASED [None]
  - DIABETES MELLITUS [None]
  - PALPITATIONS [None]
  - POST-TRAUMATIC STRESS DISORDER [None]
